FAERS Safety Report 6628732-5 (Version None)
Quarter: 2010Q1

REPORT INFORMATION
  Report Type: 
  Country: None (occurrence: None)
  Receive Date: 20100311
  Receipt Date: 20100303
  Transmission Date: 20100710
  Serious: Yes (Disabling, Other)
  Sender: FDA-Public Use
  Company Number: DK-BAYER-200939196GPV

PATIENT
  Age: 67 Year
  Sex: Male
  Weight: 83 kg

DRUGS (14)
  1. GADOLINIUM BASED CONTRAST UNKNOWN [Suspect]
     Indication: ANGIOGRAM
     Route: 042
     Dates: start: 20050107
  2. ATACAND [Concomitant]
     Dosage: TOTAL DAILY DOSE: 8 MG
     Route: 048
  3. RENAGEL [Concomitant]
     Dosage: 5 X 3
     Route: 048
  4. ZYRTEC [Concomitant]
     Dosage: TOTAL DAILY DOSE: 10 MG
     Route: 048
  5. SODIUM POLYSTYRENE SULFONATE [Concomitant]
     Dosage: TOTAL DAILY DOSE: 15 G
     Route: 054
  6. IMODIUM [Concomitant]
     Dosage: TOTAL DAILY DOSE: 1 DF
     Route: 048
  7. ACETAMINOPHEN [Concomitant]
     Dosage: TOTAL DAILY DOSE: 2 G
     Route: 048
  8. NEXIUM [Concomitant]
     Dosage: TOTAL DAILY DOSE: 20 MG
     Route: 048
  9. PHOS-EX [Concomitant]
     Dosage: TOTAL DAILY DOSE: 750 MG
     Route: 048
  10. VIBEDEN [Concomitant]
     Dosage: TOTAL DAILY DOSE: 1 MG
     Route: 030
  11. VENOFER [Concomitant]
     Dosage: TOTAL DAILY DOSE: 100 MG
     Route: 042
  12. EPREX [Concomitant]
     Route: 042
  13. MANDOLGIN [Concomitant]
     Route: 048
  14. NORVASC [Concomitant]
     Dosage: TOTAL DAILY DOSE: 5 MG
     Route: 048

REACTIONS (3)
  - NEPHROGENIC SYSTEMIC FIBROSIS [None]
  - PULMONARY HYPERTENSION [None]
  - RESPIRATORY FAILURE [None]
